FAERS Safety Report 20212362 (Version 1)
Quarter: 2021Q4

REPORT INFORMATION
  Report Type: Report from Study
  Country: US (occurrence: US)
  Receive Date: 20211221
  Receipt Date: 20211221
  Transmission Date: 20220303
  Serious: Yes (Hospitalization)
  Sender: FDA-Public Use
  Company Number: US-UCBSA-2021058337

PATIENT
  Sex: Female

DRUGS (3)
  1. LACOSAMIDE [Suspect]
     Active Substance: LACOSAMIDE
     Indication: Seizure
     Dosage: UNK
  2. LACOSAMIDE [Suspect]
     Active Substance: LACOSAMIDE
     Dosage: DOSE INCREASED
  3. LACOSAMIDE [Suspect]
     Active Substance: LACOSAMIDE
     Dosage: 150MG 1 TAB AM AND 200MG 1 TAB AT PM

REACTIONS (4)
  - Cerebrovascular accident [Not Recovered/Not Resolved]
  - Hallucination [Not Recovered/Not Resolved]
  - Nasopharyngitis [Recovered/Resolved]
  - Product use issue [Unknown]
